FAERS Safety Report 8954919 (Version 2)
Quarter: 2013Q1

REPORT INFORMATION
  Report Type: Report from Study
  Country: DE (occurrence: DE)
  Receive Date: 20121207
  Receipt Date: 20130205
  Transmission Date: 20140127
  Serious: Yes (Hospitalization)
  Sender: FDA-Public Use
  Company Number: DE-BAXTER-2012BAX025658

PATIENT
  Age: 58 Year
  Sex: Female
  Weight: 64 kg

DRUGS (14)
  1. ENDOXAN 1G [Suspect]
     Indication: BREAST CANCER
     Route: 042
     Dates: start: 20121016
  2. ENDOXAN 1G [Suspect]
     Route: 042
     Dates: start: 20121106, end: 20121127
  3. EPIRUBICIN [Suspect]
     Indication: BREAST CANCER
     Route: 042
     Dates: start: 20121016
  4. EPIRUBICIN [Suspect]
     Route: 042
     Dates: start: 20121106, end: 20121127
  5. 5-FLUOROURACIL [Suspect]
     Indication: BREAST CANCER
     Dosage: DOSE REDUCED
     Route: 065
     Dates: start: 20121016
  6. 5-FLUOROURACIL [Suspect]
     Route: 042
     Dates: start: 20121106, end: 20121127
  7. GRANISETRON [Concomitant]
     Indication: PRODUCT USED FOR UNKNOWN INDICATION
     Route: 065
     Dates: start: 20121016, end: 20121016
  8. GRANISETRON [Concomitant]
     Route: 065
     Dates: start: 20121106, end: 20121106
  9. DEXAMETHASONE [Concomitant]
     Indication: PRODUCT USED FOR UNKNOWN INDICATION
     Route: 065
     Dates: start: 20121016, end: 20121016
  10. DEXAMETHASONE [Concomitant]
     Route: 065
     Dates: start: 20121106, end: 20121106
  11. APREPITANT [Concomitant]
     Indication: PRODUCT USED FOR UNKNOWN INDICATION
     Route: 065
     Dates: start: 20121016, end: 20121016
  12. APREPITANT [Concomitant]
     Route: 065
     Dates: start: 20121017, end: 20121018
  13. APREPITANT [Concomitant]
     Route: 065
     Dates: start: 20121106, end: 20121106
  14. APREPITANT [Concomitant]
     Route: 065
     Dates: start: 20121107, end: 20121108

REACTIONS (1)
  - Pulmonary embolism [Recovered/Resolved]
